FAERS Safety Report 23529664 (Version 1)
Quarter: 2024Q1

REPORT INFORMATION
  Report Type: Spontaneous
  Country: BR (occurrence: BR)
  Receive Date: 20240216
  Receipt Date: 20240216
  Transmission Date: 20240410
  Serious: Yes (Other)
  Sender: FDA-Public Use
  Company Number: BR-002147023-NVSC2024BR032221

PATIENT
  Sex: Female

DRUGS (1)
  1. DIOVAN HCT [Suspect]
     Active Substance: HYDROCHLOROTHIAZIDE\VALSARTAN
     Indication: Product used for unknown indication
     Dosage: UNK (320/25 MG)
     Route: 065
     Dates: start: 2008

REACTIONS (2)
  - Cerebrovascular accident [Recovered/Resolved with Sequelae]
  - Product availability issue [Unknown]

NARRATIVE: CASE EVENT DATE: 20180101
